FAERS Safety Report 9069402 (Version 1)
Quarter: 2013Q1

REPORT INFORMATION
  Report Type: Report from Study
  Country: US (occurrence: US)
  Receive Date: 20130131
  Receipt Date: 20130131
  Transmission Date: 20140127
  Serious: No
  Sender: FDA-Public Use
  Company Number: US-ABBOTT-12P-163-0993103-00

PATIENT
  Age: 52 Year
  Sex: Male

DRUGS (6)
  1. HUMIRA [Suspect]
     Indication: COLITIS ULCERATIVE
     Route: 058
     Dates: start: 20120910, end: 20120910
  2. HUMIRA [Suspect]
     Route: 058
     Dates: start: 20120925, end: 20120925
  3. HUMIRA [Suspect]
     Route: 058
  4. MERCAPTOPURINE [Concomitant]
     Indication: COLITIS ULCERATIVE
     Dosage: 100MG DAILY
  5. LIALDA [Concomitant]
     Indication: COLITIS ULCERATIVE
     Dosage: 2 CAPSULES DAILY
  6. METOPROLOL ER [Concomitant]
     Indication: ATRIAL FIBRILLATION
     Route: 048

REACTIONS (4)
  - Injection site pruritus [Recovered/Resolved]
  - Injection site pruritus [Recovering/Resolving]
  - Injection site nodule [Recovering/Resolving]
  - Injection site bruising [Recovering/Resolving]
